FAERS Safety Report 19468340 (Version 1)
Quarter: 2021Q2

REPORT INFORMATION
  Report Type: Report from Study
  Country: PL (occurrence: PL)
  Receive Date: 20210628
  Receipt Date: 20210628
  Transmission Date: 20210717
  Serious: Yes (Other)
  Sender: FDA-Public Use
  Company Number: PL-EISAI MEDICAL RESEARCH-EC-2021-095186

PATIENT
  Age: 77 Year
  Sex: Female
  Weight: 61 kg

DRUGS (12)
  1. PEMBROLIZUMAB. [Suspect]
     Active Substance: PEMBROLIZUMAB
     Indication: ENDOMETRIAL CANCER
     Route: 041
     Dates: start: 20210105, end: 20210215
  2. HYDROXYZINE [Concomitant]
     Active Substance: HYDROXYZINE HYDROCHLORIDE
     Dates: start: 202001
  3. TRITACE [Concomitant]
     Active Substance: RAMIPRIL
     Dates: start: 20210120
  4. KALIPOZ [Concomitant]
     Active Substance: POTASSIUM CHLORIDE
     Dates: start: 20210309, end: 20210331
  5. POTASSIUM CHLORIDE. [Concomitant]
     Active Substance: POTASSIUM CHLORIDE
     Dates: start: 20210331, end: 20210331
  6. TERTENSIF [Concomitant]
     Active Substance: INDAPAMIDE
     Dates: start: 20210120
  7. EUTHYROX [Concomitant]
     Active Substance: LEVOTHYROXINE SODIUM
     Dates: start: 20210216
  8. ESSENTIALE FORTE [Concomitant]
     Dates: start: 20210308
  9. PEMBROLIZUMAB. [Suspect]
     Active Substance: PEMBROLIZUMAB
     Route: 041
     Dates: start: 20210308, end: 20210308
  10. LENVATINIB [Suspect]
     Active Substance: LENVATINIB
     Route: 048
     Dates: start: 20210331, end: 20210603
  11. BETO ZK [Concomitant]
     Active Substance: METOPROLOL SUCCINATE
     Dates: start: 201001
  12. LENVATINIB [Suspect]
     Active Substance: LENVATINIB
     Route: 048
     Dates: start: 20210105, end: 20210308

REACTIONS (1)
  - Hepatitis [Recovering/Resolving]

NARRATIVE: CASE EVENT DATE: 20210331
